FAERS Safety Report 22007968 (Version 2)
Quarter: 2023Q1

REPORT INFORMATION
  Report Type: Report from Study
  Country: JP (occurrence: JP)
  Receive Date: 20230218
  Receipt Date: 20230308
  Transmission Date: 20230418
  Serious: No
  Sender: FDA-Public Use
  Company Number: JP-AMGEN-JPNSP2023028668

PATIENT
  Age: 78 Year
  Sex: Female

DRUGS (6)
  1. SOTORASIB [Suspect]
     Active Substance: SOTORASIB
     Indication: K-ras gene mutation
     Dosage: 960 MILLIGRAM, QD
     Route: 048
     Dates: start: 20221117, end: 20221215
  2. SOTORASIB [Suspect]
     Active Substance: SOTORASIB
     Indication: Non-small cell lung cancer stage III
     Dosage: 480 MILLIGRAM, QD
     Route: 048
     Dates: start: 20230105, end: 20230119
  3. SOTORASIB [Suspect]
     Active Substance: SOTORASIB
     Dosage: 240 MILLIGRAM, QD
     Route: 048
     Dates: start: 20230210
  4. LEVOTHYROXINE SODIUM [Concomitant]
     Active Substance: LEVOTHYROXINE SODIUM
     Dosage: UNK
     Dates: start: 20221115
  5. LANSOPRAZOLE [Concomitant]
     Active Substance: LANSOPRAZOLE
     Indication: Prophylaxis
     Dosage: UNK
     Dates: start: 20221215
  6. SULFAMETHOXAZOLE\TRIMETHOPRIM [Concomitant]
     Active Substance: SULFAMETHOXAZOLE\TRIMETHOPRIM
     Indication: Prophylaxis
     Dosage: UNK
     Dates: start: 20221215

REACTIONS (2)
  - Liver disorder [Recovered/Resolved]
  - Liver disorder [Recovered/Resolved]

NARRATIVE: CASE EVENT DATE: 20221215
